FAERS Safety Report 5199851-8 (Version None)
Quarter: 2006Q4

REPORT INFORMATION
  Report Type: 
  Country: None (occurrence: None)
  Receive Date: 20061229
  Receipt Date: 20061215
  Transmission Date: 20070319
  Serious: Yes (Hospitalization)
  Sender: FDA-Public Use
  Company Number: SPVI-2006-02259

PATIENT
  Age: 77 Year
  Sex: Male

DRUGS (10)
  1. PENTASA [Suspect]
     Indication: COLITIS ULCERATIVE
     Dosage: 2000 MG DAILY, ORAL
     Route: 048
     Dates: start: 20040615, end: 20061009
  2. RAMIPRIL [Concomitant]
  3. BISOPROLOL (BISOPROLOL FUMARATE, HYDROCHLOROTHIAZIDE) [Concomitant]
  4. AMLODIPINE BESYLATE [Concomitant]
  5. FUROSEMIDE [Concomitant]
  6. LANSOPRAZOLE [Concomitant]
  7. ALENDRONATE SODIUM [Concomitant]
  8. ACETYLSLICYLATE LYSINE (ACETYLSALICYLATE LYSINE) [Concomitant]
  9. PREDNISOLONE SODIUM SULFOBENZOATE [Concomitant]
  10. BUFLOMEDIL HYDROCHLORIDE [Concomitant]

REACTIONS (11)
  - BRAIN NATRIURETIC PEPTIDE INCREASED [None]
  - C-REACTIVE PROTEIN INCREASED [None]
  - DYSPNOEA EXERTIONAL [None]
  - FIBRIN D DIMER INCREASED [None]
  - INTRACARDIAC MASS [None]
  - INTRACARDIAC THROMBUS [None]
  - PERICARDIAL EFFUSION [None]
  - PLATELET COUNT DECREASED [None]
  - TREATMENT NONCOMPLIANCE [None]
  - TRICUSPID VALVE STENOSIS [None]
  - VENTRICULAR HYPERTROPHY [None]
